FAERS Safety Report 5524509-2 (Version None)
Quarter: 2007Q4

REPORT INFORMATION
  Report Type: 
  Country: None (occurrence: None)
  Receive Date: 20071122
  Receipt Date: 20071114
  Transmission Date: 20080405
  Serious: Yes (Other)
  Sender: FDA-Public Use
  Company Number: PHEH2007US14849

PATIENT
  Age: 64 Year
  Sex: Male

DRUGS (1)
  1. LAMISIL AT [Suspect]
     Indication: TINEA PEDIS
     Route: 061
     Dates: start: 20071113

REACTIONS (1)
  - BLOOD GLUCOSE INCREASED [None]
